FAERS Safety Report 24643841 (Version 1)
Quarter: 2024Q4

REPORT INFORMATION
  Report Type: Spontaneous
  Country: US (occurrence: US)
  Receive Date: 20241120
  Receipt Date: 20241120
  Transmission Date: 20250114
  Serious: No
  Sender: BAYER HEALTHCARE PHARMACEUTICALS INC.
  Company Number: US-BAYER-2024A161876

PATIENT
  Age: 86 Year
  Sex: Male

DRUGS (1)
  1. NUBEQA [Suspect]
     Active Substance: DAROLUTAMIDE
     Dosage: 300 MG, QD
     Dates: start: 20241111

REACTIONS (6)
  - Dizziness [None]
  - Headache [None]
  - Balance disorder [None]
  - Chest pain [Not Recovered/Not Resolved]
  - Hypertension [None]
  - Product use issue [None]

NARRATIVE: CASE EVENT DATE: 20241111
